FAERS Safety Report 12169979 (Version 1)
Quarter: 2016Q1

REPORT INFORMATION
  Report Type: Report from Study
  Country: CA (occurrence: CA)
  Receive Date: 20160310
  Receipt Date: 20160310
  Transmission Date: 20160526
  Serious: Yes (Hospitalization)
  Sender: FDA-Public Use
  Company Number: CA-ROCHE-1723479

PATIENT
  Age: 25 Year
  Sex: Female

DRUGS (2)
  1. XOLAIR [Suspect]
     Active Substance: OMALIZUMAB
     Indication: CHRONIC SPONTANEOUS URTICARIA
     Route: 058
     Dates: start: 20150413
  2. DOXEPIN [Concomitant]
     Active Substance: DOXEPIN

REACTIONS (3)
  - Arrhythmia [Unknown]
  - Hypersensitivity [Unknown]
  - Chronic spontaneous urticaria [Unknown]

NARRATIVE: CASE EVENT DATE: 201508
